FAERS Safety Report 19146361 (Version 6)
Quarter: 2022Q3

REPORT INFORMATION
  Report Type: Spontaneous
  Country: US (occurrence: US)
  Receive Date: 20210416
  Receipt Date: 20220725
  Transmission Date: 20221027
  Serious: No
  Sender: FDA-Public Use
  Company Number: US-PFIZER INC-2021192115

PATIENT
  Age: 45 Year
  Sex: Female

DRUGS (1)
  1. LYRICA [Suspect]
     Active Substance: PREGABALIN
     Dosage: 150 MG, 4X/DAY, TAKE 1 CAPSULE FOUR TIMES A DAY (QID)
     Route: 048

REACTIONS (3)
  - Therapeutic response unexpected [Unknown]
  - Pain in extremity [Unknown]
  - Fibromyalgia [Unknown]
